FAERS Safety Report 15898911 (Version 2)
Quarter: 2019Q2

REPORT INFORMATION
  Report Type: Spontaneous
  Country: US (occurrence: US)
  Receive Date: 20190201
  Receipt Date: 20190403
  Transmission Date: 20190711
  Serious: No
  Sender: FDA-Public Use
  Company Number: US-BIOGEN-2019BI00688741

PATIENT
  Sex: Female

DRUGS (8)
  1. METHYLPHENIDATE. [Concomitant]
     Active Substance: METHYLPHENIDATE
     Route: 050
  2. TECFIDERA [Suspect]
     Active Substance: DIMETHYL FUMARATE
     Indication: MULTIPLE SCLEROSIS
     Dosage: TAKE 1 CAPSULE BY?MOUTH TWICE A DAY
     Route: 050
  3. FOSAMAX [Concomitant]
     Active Substance: ALENDRONATE SODIUM
     Route: 050
  4. ALBUTEROL. [Concomitant]
     Active Substance: ALBUTEROL
     Route: 050
  5. PREDNISONE. [Concomitant]
     Active Substance: PREDNISONE
     Route: 050
  6. TRAZODONE [Concomitant]
     Active Substance: TRAZODONE HYDROCHLORIDE
     Route: 050
  7. WELLBUTRIN [Concomitant]
     Active Substance: BUPROPION HYDROCHLORIDE
     Route: 050
  8. AMITRIPTYLINE [Concomitant]
     Active Substance: AMITRIPTYLINE
     Route: 050

REACTIONS (5)
  - Lethargy [Unknown]
  - Nasal congestion [Unknown]
  - Product dose omission [Unknown]
  - Myalgia [Unknown]
  - Asthenia [Unknown]
